FAERS Safety Report 5041981-5 (Version None)
Quarter: 2006Q2

REPORT INFORMATION
  Report Type: 
  Country: None (occurrence: None)
  Receive Date: 20060630
  Receipt Date: 20060619
  Transmission Date: 20061013
  Serious: Yes (Other)
  Sender: FDA-Public Use
  Company Number: 2006BH011246

PATIENT
  Age: 18 Year
  Sex: Female
  Weight: 68 kg

DRUGS (2)
  1. SUFENTANIL CITRATE [Suspect]
     Indication: ANALGESIC INTERVENTION SUPPORTIVE THERAPY
     Dosage: 5 UG; UNK; INTH
     Route: 037
  2. BUPIVACAINE [Concomitant]

REACTIONS (4)
  - DYSPHAGIA [None]
  - DYSPNOEA [None]
  - FATIGUE [None]
  - SENSORY DISTURBANCE [None]
